FAERS Safety Report 13909588 (Version 1)
Quarter: 2017Q3

REPORT INFORMATION
  Report Type: Spontaneous
  Country: US (occurrence: US)
  Receive Date: 20170828
  Receipt Date: 20170828
  Transmission Date: 20171127
  Serious: No
  Sender: FDA-Public Use
  Company Number: US-PFIZER INC-2017364593

PATIENT
  Age: 57 Year
  Sex: Female

DRUGS (1)
  1. IBRANCE [Suspect]
     Active Substance: PALBOCICLIB
     Dosage: 100 MG, ONCE DAILY WITH FOOD FOR 21 DAYS, THEN 7 DAYS OFF
     Dates: start: 20170810

REACTIONS (2)
  - Diarrhoea [Unknown]
  - Back pain [Unknown]
